FAERS Safety Report 10227395 (Version 2)
Quarter: 2014Q3

REPORT INFORMATION
  Report Type: Report from Study
  Country: CA (occurrence: None)
  Receive Date: 20140606
  Receipt Date: 20140702
  Transmission Date: 20150326
  Serious: Yes (Death, Other)
  Sender: FDA-Public Use
  Company Number: CA-015933

PATIENT
  Age: 77 Year
  Sex: Male

DRUGS (3)
  1. FIRMAGON [Suspect]
     Active Substance: DEGARELIX ACETATE
     Indication: PROSTATE CANCER
     Route: 058
     Dates: start: 20131112
  2. METFORMIN [Concomitant]
     Active Substance: METFORMIN HYDROCHLORIDE
  3. CASODEX [Concomitant]
     Active Substance: BICALUTAMIDE

REACTIONS (6)
  - General physical health deterioration [None]
  - Metastasis [None]
  - Bone cancer [None]
  - Confusional state [None]
  - Malignant neoplasm progression [None]
  - Asthenia [None]
